FAERS Safety Report 8771900 (Version 1)
Quarter: 2012Q4

REPORT INFORMATION
  Report Type: 
  Country: SE (occurrence: SE)
  Receive Date: 20120905
  Receipt Date: 20120905
  Transmission Date: 20130627
  Serious: Yes (Other)
  Sender: FDA-Public Use
  Company Number: SE-ROCHE-GNE317564

PATIENT
  Age: 14 Year
  Sex: Female

DRUGS (1)
  1. NUTROPIN AQ [Suspect]
     Indication: GROWTH RETARDATION
     Dosage: 1.2 mg, qd
     Route: 058
     Dates: start: 20090123

REACTIONS (1)
  - Inflammatory bowel disease [Recovered/Resolved with Sequelae]
